FAERS Safety Report 25010068 (Version 1)
Quarter: 2025Q1

REPORT INFORMATION
  Report Type: Spontaneous
  Country: US (occurrence: US)
  Receive Date: 20250225
  Receipt Date: 20250225
  Transmission Date: 20250408
  Serious: No
  Sender: DR REDDYS
  Company Number: US-DRL-USA-USA/2025/02/002190

PATIENT

DRUGS (2)
  1. ATORVASTATIN [Suspect]
     Active Substance: ATORVASTATIN
     Indication: Product used for unknown indication
     Route: 063
  2. PREDNISONE [Suspect]
     Active Substance: PREDNISONE
     Indication: Product used for unknown indication
     Route: 063

REACTIONS (1)
  - Exposure via breast milk [Unknown]
